FAERS Safety Report 4394640-6 (Version None)
Quarter: 2004Q3

REPORT INFORMATION
  Report Type: 
  Country: None (occurrence: None)
  Receive Date: 20040707
  Receipt Date: 20040622
  Transmission Date: 20050211
  Serious: Yes (Death)
  Sender: FDA-Public Use
  Company Number: US-JNJFOC-20040204213

PATIENT
  Age: 65 Year
  Sex: Female

DRUGS (12)
  1. DURAGESIC [Suspect]
     Indication: CANCER PAIN
     Dosage: SEE IMAGE
     Route: 062
     Dates: start: 20040201, end: 20040214
  2. DURAGESIC [Suspect]
     Indication: CANCER PAIN
     Dosage: SEE IMAGE
     Route: 062
     Dates: start: 20030101
  3. DURAGESIC [Suspect]
     Indication: CANCER PAIN
     Dosage: SEE IMAGE
     Route: 062
     Dates: start: 20040214
  4. HERCEPTIN [Concomitant]
  5. REGLAN [Concomitant]
  6. OXYCODONE HCL [Concomitant]
  7. ALPRAZOLAM [Concomitant]
  8. VITAMIN C (ASCORBIC ACID) [Concomitant]
  9. ZOMETA [Concomitant]
  10. DECADRON [Concomitant]
  11. DIFLUCAN [Concomitant]
  12. CAFFEINE ENEMA (ENEMAS) [Concomitant]

REACTIONS (15)
  - BLOOD UREA INCREASED [None]
  - BONE DISORDER [None]
  - BREAST CANCER METASTATIC [None]
  - DRUG INEFFECTIVE [None]
  - DRY MOUTH [None]
  - GENERAL PHYSICAL HEALTH DETERIORATION [None]
  - LIVER DISORDER [None]
  - LUNG DISORDER [None]
  - MALIGNANT NEOPLASM PROGRESSION [None]
  - MEDICATION ERROR [None]
  - NAUSEA [None]
  - NERVOUS SYSTEM DISORDER [None]
  - PAIN [None]
  - PHARMACEUTICAL PRODUCT COMPLAINT [None]
  - VOMITING [None]
